FAERS Safety Report 8152153-X (Version None)
Quarter: 2012Q1

REPORT INFORMATION
  Report Type: 
  Country: None (occurrence: None)
  Receive Date: 20120214
  Receipt Date: 20120201
  Transmission Date: 20120608
  Serious: Yes (Disabling, Other)
  Sender: FDA-Public Use
  Company Number: 1181124

PATIENT
  Age: 7 Year
  Sex: Female

DRUGS (1)
  1. MAGNESIUM SULFATE [Suspect]
     Indication: BRONCHOSPASM
     Dosage: 2 ML MILLILITERS

REACTIONS (2)
  - DEPRESSED LEVEL OF CONSCIOUSNESS [None]
  - VISION BLURRED [None]
